FAERS Safety Report 13706644 (Version 1)
Quarter: 2017Q2

REPORT INFORMATION
  Report Type: Spontaneous
  Country: US (occurrence: US)
  Receive Date: 20170630
  Receipt Date: 20170630
  Transmission Date: 20170830
  Serious: No
  Sender: FDA-Public Use
  Company Number: US-JNJFOC-20170407035

PATIENT
  Age: 12 Year
  Sex: Female
  Weight: 61.69 kg

DRUGS (2)
  1. LAMICTAL [Concomitant]
     Active Substance: LAMOTRIGINE
     Route: 065
  2. METHYLPHENIDATE HYDROCHLORIDE. [Suspect]
     Active Substance: METHYLPHENIDATE HYDROCHLORIDE
     Indication: ATTENTION DEFICIT/HYPERACTIVITY DISORDER
     Route: 048
     Dates: start: 201703, end: 201703

REACTIONS (2)
  - Hypersomnia [Not Recovered/Not Resolved]
  - Drug level fluctuating [Not Recovered/Not Resolved]

NARRATIVE: CASE EVENT DATE: 201703
